FAERS Safety Report 10232042 (Version 1)
Quarter: 2014Q2

REPORT INFORMATION
  Report Type: Spontaneous
  Country: US (occurrence: US)
  Receive Date: 20140612
  Receipt Date: 20140612
  Transmission Date: 20141212
  Serious: No
  Sender: FDA-Public Use
  Company Number: US-BIOGENIDEC-2014BI049300

PATIENT
  Sex: Female

DRUGS (12)
  1. TECFIDERA [Suspect]
     Indication: MULTIPLE SCLEROSIS
     Route: 048
  2. TEGRETOL [Concomitant]
  3. GABAPENTIN [Concomitant]
  4. VENTOLIN [Concomitant]
  5. ASPIRIN [Concomitant]
  6. ALPRAZOLAM [Concomitant]
  7. BACLOFEN [Concomitant]
  8. OXYBUTYNIN [Concomitant]
  9. TRAZODONE [Concomitant]
  10. AMANTADINE [Concomitant]
  11. ZANAFLEX [Concomitant]
  12. OMEPRAZOLE [Concomitant]

REACTIONS (1)
  - Weight decreased [Unknown]
